FAERS Safety Report 7827888-6 (Version None)
Quarter: 2011Q4

REPORT INFORMATION
  Report Type: 
  Country: None (occurrence: None)
  Receive Date: 20111020
  Receipt Date: 20111017
  Transmission Date: 20120403
  Serious: Yes (Life-Threatening, Hospitalization, Disabling)
  Sender: FDA-Public Use
  Company Number: US-B.I. PHARMACEUTICALS,INC./RIDGEFIELD-2011-BP-24502BP

PATIENT
  Sex: Male

DRUGS (1)
  1. PRADAXA [Suspect]

REACTIONS (7)
  - CEREBRAL HAEMORRHAGE [None]
  - SPEECH DISORDER [None]
  - BRAIN OEDEMA [None]
  - READING DISORDER [None]
  - ADVERSE DRUG REACTION [None]
  - CEREBROVASCULAR ACCIDENT [None]
  - VISUAL IMPAIRMENT [None]
